FAERS Safety Report 18642431 (Version 1)
Quarter: 2020Q4

REPORT INFORMATION
  Report Type: Spontaneous
  Country: FI (occurrence: FI)
  Receive Date: 20201221
  Receipt Date: 20201221
  Transmission Date: 20210114
  Serious: Yes (Other)
  Sender: FDA-Public Use
  Company Number: FI-009507513-1910FIN008696

PATIENT
  Sex: Male

DRUGS (10)
  1. KARDOPAL 200 MG/50 MG PROLONGED RELEASE [Suspect]
     Active Substance: CARBIDOPA\LEVODOPA
     Dosage: 200/50 MGX 4.5/DAILY (1 D)
     Route: 048
     Dates: start: 201408
  2. SIFROL [Suspect]
     Active Substance: PRAMIPEXOLE
     Indication: PARKINSON^S DISEASE
     Dosage: 0.54 MG (0.18 MG, 1 IN 8 HR)
     Route: 048
     Dates: start: 200909, end: 200912
  3. SIFROL [Suspect]
     Active Substance: PRAMIPEXOLE
     Dosage: 1.05 MG (1.05 MG, 1 IN 1 D)
     Route: 048
     Dates: start: 201003, end: 201104
  4. SIFROL [Suspect]
     Active Substance: PRAMIPEXOLE
     Dosage: 1.05 MG (1.05 MG, 1 IN 1 D)
     Route: 048
     Dates: start: 201509, end: 20190801
  5. SIFROL [Suspect]
     Active Substance: PRAMIPEXOLE
     Dosage: 1.57 MG (1.57 MG, 1 IN 1 D)
     Route: 048
     Dates: start: 201104, end: 201208
  6. KARDOPAL 200 MG/50 MG PROLONGED RELEASE [Suspect]
     Active Substance: CARBIDOPA\LEVODOPA
     Indication: PARKINSON^S DISEASE
     Dosage: 200/50 MGX3/DAILY (4.5 DOSAGE FORM, 1 IN 8 HR)
     Route: 048
     Dates: start: 200909, end: 200912
  7. KARDOPAL 200 MG/50 MG PROLONGED RELEASE [Suspect]
     Active Substance: CARBIDOPA\LEVODOPA
     Dosage: 200/50 MGX 4/DAILY (1 IN 6 HR)
     Route: 048
     Dates: start: 200912, end: 201208
  8. SIFROL [Suspect]
     Active Substance: PRAMIPEXOLE
     Dosage: 0.35 MG (0.35 MG, 1 IN 1 D)
     Route: 048
     Dates: start: 200912, end: 201003
  9. SIFROL [Suspect]
     Active Substance: PRAMIPEXOLE
     Dosage: 2.1 MG (2.1 MG, 1 IN 1 D)
     Route: 048
     Dates: start: 201208, end: 201509
  10. KARDOPAL 200 MG/50 MG PROLONGED RELEASE [Suspect]
     Active Substance: CARBIDOPA\LEVODOPA
     Dosage: 200/50 MGX 3.5/DAILY (1 D)
     Route: 048
     Dates: start: 201208, end: 201408

REACTIONS (8)
  - Micturition urgency [Recovered/Resolved]
  - Blood pressure increased [Unknown]
  - Skin discolouration [Unknown]
  - Constipation [Unknown]
  - Urinary incontinence [Recovered/Resolved]
  - Venous thrombosis [Recovering/Resolving]
  - Increased viscosity of upper respiratory secretion [Recovering/Resolving]
  - Oedema peripheral [Recovered/Resolved]

NARRATIVE: CASE EVENT DATE: 2009
